FAERS Safety Report 18935665 (Version 1)
Quarter: 2021Q1

REPORT INFORMATION
  Report Type: Spontaneous
  Country: US (occurrence: US)
  Receive Date: 20210225
  Receipt Date: 20210225
  Transmission Date: 20210420
  Serious: No
  Sender: FDA-Public Use
  Company Number: US-STRIDES ARCOLAB LIMITED-2021SP000450

PATIENT

DRUGS (1)
  1. CINACALCET. [Suspect]
     Active Substance: CINACALCET
     Indication: CHRONIC KIDNEY DISEASE
     Dosage: INITIAL DOSE OF 0.2MG/KG ONCE A DAY
     Route: 065

REACTIONS (1)
  - Liver disorder [Unknown]
